FAERS Safety Report 10182279 (Version 2)
Quarter: 2014Q2

REPORT INFORMATION
  Report Type: Spontaneous
  Country: CL (occurrence: CL)
  Receive Date: 20140520
  Receipt Date: 20140602
  Transmission Date: 20141212
  Serious: Yes (Hospitalization)
  Sender: FDA-Public Use
  Company Number: CL-ROCHE-1402564

PATIENT
  Age: 77 Year
  Sex: Female
  Weight: 60 kg

DRUGS (3)
  1. HERCEPTIN [Suspect]
     Indication: PRODUCT USED FOR UNKNOWN INDICATION
     Route: 065
     Dates: start: 20140429
  2. PERJETA [Suspect]
     Indication: METASTASES TO BONE
     Route: 042
     Dates: start: 20140429, end: 20140429
  3. PERJETA [Suspect]
     Indication: BREAST CANCER

REACTIONS (2)
  - Dehydration [Not Recovered/Not Resolved]
  - Mucosal inflammation [Not Recovered/Not Resolved]
